FAERS Safety Report 9543578 (Version 1)
Quarter: 2013Q3

REPORT INFORMATION
  Report Type: Spontaneous
  Country: US (occurrence: US)
  Receive Date: 20130923
  Receipt Date: 20130923
  Transmission Date: 20140515
  Serious: Yes (Disabling, Other)
  Sender: FDA-Public Use
  Company Number: US-PFIZER INC-2013272676

PATIENT
  Age: 46 Year
  Sex: Female
  Weight: 74.4 kg

DRUGS (1)
  1. LYRICA [Suspect]
     Indication: FIBROMYALGIA
     Dosage: 200 MG, 3X/DAY
     Route: 048

REACTIONS (3)
  - Road traffic accident [Unknown]
  - Back disorder [Unknown]
  - Blood pressure abnormal [Unknown]
